FAERS Safety Report 11737441 (Version 1)
Quarter: 2015Q4

REPORT INFORMATION
  Report Type: Spontaneous
  Country: US (occurrence: US)
  Receive Date: 20151110
  Receipt Date: 20151110
  Transmission Date: 20160304
  Serious: No
  Sender: FDA-Public Use
  Company Number: US-ELI_LILLY_AND_COMPANY-US201205005651

PATIENT
  Age: 80 Year
  Sex: Female

DRUGS (4)
  1. FORTEO [Suspect]
     Active Substance: TERIPARATIDE
     Dosage: 20 UG, QD
     Route: 065
  2. FORTEO [Suspect]
     Active Substance: TERIPARATIDE
     Indication: OSTEOPOROSIS
     Dosage: 20 UG, QD
     Route: 065
     Dates: start: 201204
  3. DIURETICS [Concomitant]
     Active Substance: UNSPECIFIED INGREDIENT
     Dosage: UNK, QOD
  4. FORTEO [Suspect]
     Active Substance: TERIPARATIDE
     Dosage: 20 UG, QD
     Route: 065

REACTIONS (5)
  - Injection site erythema [Not Recovered/Not Resolved]
  - Wrong technique in product usage process [Unknown]
  - Pain [Unknown]
  - Memory impairment [Unknown]
  - Pain in extremity [Unknown]

NARRATIVE: CASE EVENT DATE: 20120513
